FAERS Safety Report 24631263 (Version 1)
Quarter: 2024Q4

REPORT INFORMATION
  Report Type: Spontaneous
  Country: US (occurrence: None)
  Receive Date: 20241118
  Receipt Date: 20241118
  Transmission Date: 20250115
  Serious: Yes (Other)
  Sender: Public
  Company Number: None

PATIENT
  Age: 37 Year
  Sex: Female
  Weight: 99.45 kg

DRUGS (11)
  1. CEFDINIR [Suspect]
     Active Substance: CEFDINIR
     Indication: Bronchitis
     Dosage: 1 CAPSULE TWICE  DAY ORAL
     Route: 048
     Dates: start: 20241022, end: 20241024
  2. DOXYCYCLINE [Suspect]
     Active Substance: DOXYCYCLINE
  3. NEXPLANON [Concomitant]
  4. buproprion [Concomitant]
  5. BOTOX [Concomitant]
     Active Substance: ONABOTULINUMTOXINA
  6. LISINOPRIL [Concomitant]
  7. HYDROXYZINE [Concomitant]
  8. ZAVZPRET [Concomitant]
     Active Substance: ZAVEGEPANT HYDROCHLORIDE
  9. ALBUTEROL [Concomitant]
     Active Substance: ALBUTEROL
  10. Zyrtec [Concomitant]
  11. FISH OIL [Concomitant]

REACTIONS (3)
  - Blister [None]
  - Joint swelling [None]
  - Impaired work ability [None]

NARRATIVE: CASE EVENT DATE: 20241022
